FAERS Safety Report 11358896 (Version 1)
Quarter: 2015Q3

REPORT INFORMATION
  Report Type: Spontaneous
  Country: US (occurrence: None)
  Receive Date: 20150807
  Receipt Date: 20150807
  Transmission Date: 20151125
  Serious: Yes (Other)
  Sender: FDA-Public Use
  Company Number: None

PATIENT
  Age: 49 Year
  Sex: Female
  Weight: 93.44 kg

DRUGS (5)
  1. COREG CR [Concomitant]
     Active Substance: CARVEDILOL PHOSPHATE
  2. PROZAC [Concomitant]
     Active Substance: FLUOXETINE HYDROCHLORIDE
  3. PROTONIX [Concomitant]
     Active Substance: PANTOPRAZOLE SODIUM
  4. CONTRAVE [Suspect]
     Active Substance: BUPROPION HYDROCHLORIDE\NALTREXONE HYDROCHLORIDE
     Indication: OBESITY
     Dosage: 2 PILLS
     Route: 048
     Dates: start: 20150622, end: 20150731
  5. RAMIPRIL. [Concomitant]
     Active Substance: RAMIPRIL

REACTIONS (10)
  - Eye pain [None]
  - Decreased appetite [None]
  - Vision blurred [None]
  - Lip dry [None]
  - Skin exfoliation [None]
  - Lip swelling [None]
  - Abasia [None]
  - Back pain [None]
  - Oral discomfort [None]
  - Cheilitis [None]

NARRATIVE: CASE EVENT DATE: 20150731
